FAERS Safety Report 19007191 (Version 1)
Quarter: 2021Q1

REPORT INFORMATION
  Report Type: Spontaneous
  Country: US (occurrence: US)
  Receive Date: 20210315
  Receipt Date: 20210315
  Transmission Date: 20210420
  Serious: Yes (Hospitalization)
  Sender: FDA-Public Use
  Company Number: None

PATIENT
  Age: 74 Year
  Sex: Male
  Weight: 78.3 kg

DRUGS (1)
  1. KYMRIAH [Suspect]
     Active Substance: TISAGENLECLEUCEL
     Indication: DIFFUSE LARGE B-CELL LYMPHOMA
     Dates: start: 20210208, end: 20210208

REACTIONS (3)
  - Neurotoxicity [None]
  - Cytokine release syndrome [None]
  - Cerebral disorder [None]

NARRATIVE: CASE EVENT DATE: 20210208
